FAERS Safety Report 19098075 (Version 1)
Quarter: 2021Q2

REPORT INFORMATION
  Report Type: Spontaneous
  Country: JP (occurrence: JP)
  Receive Date: 20210406
  Receipt Date: 20210406
  Transmission Date: 20210717
  Serious: Yes (Other)
  Sender: FDA-Public Use
  Company Number: NVSJ2021JP004876

PATIENT
  Age: 48 Year
  Sex: Female

DRUGS (3)
  1. PALBOCICLIB [Suspect]
     Active Substance: PALBOCICLIB
     Indication: BREAST CANCER STAGE II
     Dosage: UNK, 3 WEEKS ON, 1 WEEK OFF
     Route: 065
  2. PALBOCICLIB [Suspect]
     Active Substance: PALBOCICLIB
     Dosage: UNK, 3 WEEKS ON, 1 WEEK OFF
     Route: 065
  3. LETROZOLE. [Suspect]
     Active Substance: LETROZOLE
     Indication: BREAST CANCER STAGE II
     Dosage: 2.5 MG
     Route: 065

REACTIONS (6)
  - Neutrophil count decreased [Unknown]
  - Metastases to liver [Unknown]
  - Breast cancer stage II [Unknown]
  - Malignant neoplasm progression [Unknown]
  - Metastases to bone [Unknown]
  - Metastases to lung [Unknown]
